FAERS Safety Report 10296396 (Version 1)
Quarter: 2014Q3

REPORT INFORMATION
  Report Type: Spontaneous
  Country: US (occurrence: None)
  Receive Date: 20140708
  Receipt Date: 20140708
  Transmission Date: 20150326
  Serious: No
  Sender: FDA-Public Use
  Company Number: None

PATIENT
  Age: 60 Year
  Sex: Female
  Weight: 54.43 kg

DRUGS (6)
  1. LEVYTHYROXIN [Concomitant]
  2. MULTI VITAMIN [Concomitant]
     Active Substance: VITAMINS
  3. CALCIUM [Concomitant]
     Active Substance: CALCIUM
  4. PROLIA [Suspect]
     Active Substance: DENOSUMAB
     Indication: OSTEOPOROSIS
     Dosage: INJECTION AT DR. OFFICE.?1 INJECTION 4/28/2014?ONCE EVERY 6 MONTHS?INJECTION
     Dates: start: 20140428
  5. VITAMIN D3 [Concomitant]
     Active Substance: CHOLECALCIFEROL
  6. OMEGA 3 6 9 [Concomitant]

REACTIONS (13)
  - Gait disturbance [None]
  - Pruritus [None]
  - Burning sensation [None]
  - Drug ineffective [None]
  - Vertigo [None]
  - Dysgeusia [None]
  - Bone pain [None]
  - Salivary hypersecretion [None]
  - Sensitivity of teeth [None]
  - Fatigue [None]
  - Joint swelling [None]
  - Insomnia [None]
  - Arthralgia [None]

NARRATIVE: CASE EVENT DATE: 20140428
